FAERS Safety Report 15935061 (Version 1)
Quarter: 2019Q1

REPORT INFORMATION
  Report Type: Spontaneous
  Country: US (occurrence: US)
  Receive Date: 20190207
  Receipt Date: 20190207
  Transmission Date: 20190417
  Serious: No
  Sender: FDA-Public Use
  Company Number: US-GILEAD-2019-0387882

PATIENT
  Age: 64 Year
  Sex: Male

DRUGS (8)
  1. DESCOVY [Suspect]
     Active Substance: EMTRICITABINE\TENOFOVIR ALAFENAMIDE FUMARATE
     Indication: HIV INFECTION
     Dosage: 1 DF
     Route: 048
     Dates: start: 201806
  2. CLONAZEPAM. [Concomitant]
     Active Substance: CLONAZEPAM
  3. CELEBREX [Concomitant]
     Active Substance: CELECOXIB
  4. COLCHICINE. [Concomitant]
     Active Substance: COLCHICINE
  5. TIVICAY [Suspect]
     Active Substance: DOLUTEGRAVIR SODIUM
     Indication: HIV INFECTION
     Dosage: 50 MG
     Route: 048
     Dates: start: 201806
  6. CIALIS [Concomitant]
     Active Substance: TADALAFIL
  7. ADDERALL [Concomitant]
     Active Substance: AMPHETAMINE ASPARTATE\AMPHETAMINE SULFATE\DEXTROAMPHETAMINE SACCHARATE\DEXTROAMPHETAMINE SULFATE
  8. DICLOFENAC [Concomitant]
     Active Substance: DICLOFENAC

REACTIONS (1)
  - Product dose omission [Recovered/Resolved]
